FAERS Safety Report 8985792 (Version 3)
Quarter: 2014Q1

REPORT INFORMATION
  Report Type: Report from Study
  Country: US (occurrence: US)
  Receive Date: 20121226
  Receipt Date: 20140107
  Transmission Date: 20141002
  Serious: Yes (Hospitalization, Other)
  Sender: FDA-Public Use
  Company Number: US-ACTELION-A-US2012-76695

PATIENT
  Age: 31 Year
  Sex: Female

DRUGS (3)
  1. TRACLEER [Suspect]
     Indication: PULMONARY ARTERIAL HYPERTENSION
     Dosage: UNK
     Route: 048
  2. SILDENAFIL [Concomitant]
     Indication: PULMONARY ARTERIAL HYPERTENSION
  3. REMODULIN [Concomitant]

REACTIONS (5)
  - Gastritis bacterial [Recovering/Resolving]
  - Bronchitis [Recovering/Resolving]
  - Dysuria [Unknown]
  - Fluid retention [Recovering/Resolving]
  - Oedema [Recovering/Resolving]
